FAERS Safety Report 25023028 (Version 1)
Quarter: 2025Q1

REPORT INFORMATION
  Report Type: Spontaneous
  Country: US (occurrence: US)
  Receive Date: 20250228
  Receipt Date: 20250228
  Transmission Date: 20250408
  Serious: No
  Sender: MYLAN
  Company Number: US-MYLANLABS-2025M1012971

PATIENT
  Sex: Female

DRUGS (6)
  1. LYRICA [Suspect]
     Active Substance: PREGABALIN
     Indication: Product used for unknown indication
     Dosage: 50 MILLIGRAM, BID (TWICE A DAY)
  2. MS CONTIN [Concomitant]
     Active Substance: MORPHINE SULFATE
  3. ONDANSETRON [Concomitant]
     Active Substance: ONDANSETRON
  4. VUMERITY [Concomitant]
     Active Substance: DIROXIMEL FUMARATE
  5. NEXIUM [Concomitant]
     Active Substance: ESOMEPRAZOLE MAGNESIUM
  6. BACLOFEN [Concomitant]
     Active Substance: BACLOFEN

REACTIONS (2)
  - Sedation [Unknown]
  - Drug intolerance [Unknown]
